FAERS Safety Report 9105660 (Version 1)
Quarter: 2013Q1

REPORT INFORMATION
  Report Type: Spontaneous
  Country: PH (occurrence: PH)
  Receive Date: 20130220
  Receipt Date: 20130220
  Transmission Date: 20140127
  Serious: Yes (Hospitalization)
  Sender: FDA-Public Use
  Company Number: PH-009507513-1302PHL008348

PATIENT
  Age: 77 Year
  Sex: Male

DRUGS (1)
  1. JANUMET [Suspect]

REACTIONS (1)
  - Impaired healing [Not Recovered/Not Resolved]
